FAERS Safety Report 13349591 (Version 4)
Quarter: 2018Q3

REPORT INFORMATION
  Report Type: Report from Study
  Country: CO (occurrence: CO)
  Receive Date: 20170320
  Receipt Date: 20180827
  Transmission Date: 20181010
  Serious: Yes (Other)
  Sender: FDA-Public Use
  Company Number: PHHY2016CO137428

PATIENT
  Age: 65 Year
  Sex: Female
  Weight: 68 kg

DRUGS (5)
  1. SANDOSTATIN LAR DEPOT [Suspect]
     Active Substance: OCTREOTIDE ACETATE
     Dosage: 20 MG, QMO (EVERY 28 DAYS)
     Route: 030
     Dates: start: 20130216
  2. SANDOSTATIN LAR DEPOT [Suspect]
     Active Substance: OCTREOTIDE ACETATE
     Dosage: 20 MG, QMO
     Route: 030
  3. SANDOSTATIN LAR DEPOT [Suspect]
     Active Substance: OCTREOTIDE ACETATE
     Dosage: 30 MG, UNK
     Route: 030
  4. SANDOSTATIN LAR DEPOT [Suspect]
     Active Substance: OCTREOTIDE ACETATE
     Dosage: 40 MG/KG, QMO
     Route: 030
     Dates: start: 20141016
  5. SANDOSTATIN LAR DEPOT [Suspect]
     Active Substance: OCTREOTIDE ACETATE
     Indication: ACROMEGALY
     Dosage: 20 MG, QMO (2 AMPOULES MONTHLY)
     Route: 030
     Dates: start: 20130201

REACTIONS (13)
  - Crying [Unknown]
  - Skeletal injury [Unknown]
  - Gait inability [Unknown]
  - Pain [Unknown]
  - Abdominal pain [Unknown]
  - Musculoskeletal discomfort [Unknown]
  - Asthenia [Unknown]
  - Soft tissue injury [Unknown]
  - Incorrect dose administered [Unknown]
  - Headache [Unknown]
  - Depressed mood [Unknown]
  - Hormone level abnormal [Unknown]
  - Drug ineffective [Unknown]

NARRATIVE: CASE EVENT DATE: 20160908
